FAERS Safety Report 8053587-4 (Version None)
Quarter: 2012Q1

REPORT INFORMATION
  Report Type: 
  Country: None (occurrence: None)
  Receive Date: 20120118
  Receipt Date: 20120112
  Transmission Date: 20120608
  Serious: Yes (Other)
  Sender: FDA-Public Use
  Company Number: CA-MERCK-1201USA01725

PATIENT
  Age: 8 Year
  Sex: Male
  Weight: 37 kg

DRUGS (3)
  1. FLOVENT [Concomitant]
     Route: 065
  2. SINGULAIR [Suspect]
     Route: 048
  3. VENTOLIN [Concomitant]
     Route: 065

REACTIONS (7)
  - ABNORMAL BEHAVIOUR [None]
  - NIGHTMARE [None]
  - PERSONALITY CHANGE [None]
  - ANGER [None]
  - CRYING [None]
  - INSOMNIA [None]
  - ANXIETY [None]
